FAERS Safety Report 15754298 (Version 1)
Quarter: 2018Q4

REPORT INFORMATION
  Report Type: Spontaneous
  Country: US (occurrence: US)
  Receive Date: 20181223
  Receipt Date: 20181223
  Transmission Date: 20190205
  Serious: Yes (Other)
  Sender: FDA-Public Use
  Company Number: US-AMGEN-USASP2018181655

PATIENT
  Age: 62 Year
  Sex: Female
  Weight: 68.27 kg

DRUGS (17)
  1. TRINTELLIX [Concomitant]
     Active Substance: VORTIOXETINE HYDROBROMIDE
     Indication: DEPRESSION
     Dosage: UNK
  2. PROZAC [Concomitant]
     Active Substance: FLUOXETINE HYDROCHLORIDE
     Indication: DEPRESSION
     Dosage: UNK
  3. NEURONTIN [Concomitant]
     Active Substance: GABAPENTIN
     Indication: PAIN
     Dosage: UNK
  4. LEVOTHYROXINE. [Concomitant]
     Active Substance: LEVOTHYROXINE
     Indication: HYPOTHYROIDISM
     Dosage: UNK
  5. BUMETANIDE. [Concomitant]
     Active Substance: BUMETANIDE
     Indication: HEART RATE INCREASED
     Dosage: UNK
  6. ALPRAZOLAM. [Concomitant]
     Active Substance: ALPRAZOLAM
     Indication: ANXIETY
     Dosage: UNK
  7. ACTEMRA [Suspect]
     Active Substance: TOCILIZUMAB
     Indication: RHEUMATOID ARTHRITIS
     Dosage: UNK UNK, QD
     Route: 048
     Dates: start: 2017, end: 201802
  8. XELJANZ [Suspect]
     Active Substance: TOFACITINIB CITRATE
     Indication: PRODUCT USED FOR UNKNOWN INDICATION
     Dosage: UNK UNK, BID
     Route: 048
     Dates: start: 2018, end: 201808
  9. HUMIRA [Suspect]
     Active Substance: ADALIMUMAB
     Indication: FIBROMYALGIA
     Dosage: 40 MG, QWK
     Route: 058
     Dates: end: 2017
  10. HUMIRA [Suspect]
     Active Substance: ADALIMUMAB
     Indication: OSTEOARTHRITIS
  11. HUMIRA [Suspect]
     Active Substance: ADALIMUMAB
     Indication: RHEUMATOID ARTHRITIS
  12. SPIRONOLACTONE. [Concomitant]
     Active Substance: SPIRONOLACTONE
     Indication: PRODUCT USED FOR UNKNOWN INDICATION
     Dosage: UNK
  13. ENBREL [Suspect]
     Active Substance: ETANERCEPT
     Indication: RHEUMATOID ARTHRITIS
     Dosage: UNK UNK, QWK
     Route: 065
     Dates: start: 2017, end: 2017
  14. HUMIRA [Suspect]
     Active Substance: ADALIMUMAB
     Indication: PSORIATIC ARTHROPATHY
     Dosage: 40 MG, QWK
     Route: 058
     Dates: start: 2013, end: 2015
  15. NORCO [Concomitant]
     Active Substance: ACETAMINOPHEN\HYDROCODONE BITARTRATE
     Indication: PAIN
     Dosage: UNK
  16. INDERAL [Concomitant]
     Active Substance: PROPRANOLOL HYDROCHLORIDE
     Indication: PRODUCT USED FOR UNKNOWN INDICATION
     Dosage: UNK
  17. BUSPAR [Concomitant]
     Active Substance: BUSPIRONE HYDROCHLORIDE
     Indication: ANXIETY
     Dosage: UNK

REACTIONS (13)
  - Rotator cuff syndrome [Recovering/Resolving]
  - Gastroenteritis viral [Recovered/Resolved]
  - Cataract [Recovered/Resolved]
  - Exostosis [Recovering/Resolving]
  - Arthralgia [Unknown]
  - Upper respiratory tract infection [Recovering/Resolving]
  - Weight bearing difficulty [Recovered/Resolved]
  - Pain [Not Recovered/Not Resolved]
  - Shoulder operation [Recovered/Resolved]
  - Pain in extremity [Recovered/Resolved]
  - Fall [Recovered/Resolved]
  - Musculoskeletal pain [Recovering/Resolving]
  - Urinary tract infection [Recovered/Resolved]

NARRATIVE: CASE EVENT DATE: 2017
